FAERS Safety Report 5860761-1 (Version None)
Quarter: 2008Q3

REPORT INFORMATION
  Report Type: 
  Country: None (occurrence: None)
  Receive Date: 20080827
  Receipt Date: 20071113
  Transmission Date: 20090109
  Serious: No
  Sender: FDA-Public Use
  Company Number: US-ABBOTT-07P-163-0424835-00

PATIENT
  Sex: Female
  Weight: 75.818 kg

DRUGS (7)
  1. NIASPAN [Suspect]
     Indication: BLOOD CHOLESTEROL INCREASED
     Route: 048
     Dates: start: 20071109, end: 20071109
  2. NIASPAN [Suspect]
     Indication: BLOOD TRIGLYCERIDES
  3. METHOTREXATE [Concomitant]
     Indication: RHEUMATOID ARTHRITIS
  4. AVANDAMET [Concomitant]
     Indication: DIABETES MELLITUS
  5. CARVODOPA [Concomitant]
     Indication: PARKINSON'S DISEASE
  6. LEVODOPA [Concomitant]
     Indication: PARKINSON'S DISEASE
  7. QUINAPRIL [Concomitant]
     Indication: BLOOD PRESSURE

REACTIONS (13)
  - ABASIA [None]
  - ASTHENIA [None]
  - CHILLS [None]
  - FAECAL INCONTINENCE [None]
  - FEELING COLD [None]
  - FEELING HOT [None]
  - GASTRIC DISORDER [None]
  - HEADACHE [None]
  - IMPAIRED SELF-CARE [None]
  - NAUSEA [None]
  - TREMOR [None]
  - URINARY INCONTINENCE [None]
  - VOMITING [None]
